FAERS Safety Report 23750421 (Version 4)
Quarter: 2025Q3

REPORT INFORMATION
  Report Type: Report from Study
  Country: CA (occurrence: CA)
  Receive Date: 20240417
  Receipt Date: 20250927
  Transmission Date: 20251021
  Serious: Yes (Other)
  Sender: ABBVIE
  Company Number: CA-ABBVIE-5719644

PATIENT
  Age: 21 Year
  Sex: Female
  Weight: 68.9 kg

DRUGS (25)
  1. UPADACITINIB [Suspect]
     Active Substance: UPADACITINIB
     Indication: Dermatitis atopic
     Route: 048
     Dates: start: 20220318, end: 20240402
  2. AVEENO [Concomitant]
     Active Substance: DIMETHICONE\HOMOSALATE\OCTINOXATE\OCTISALATE\TITANIUM DIOXIDE
     Indication: Dermatitis atopic
     Dates: start: 20210217
  3. ALESSE 28 [Concomitant]
     Active Substance: ETHINYL ESTRADIOL\LEVONORGESTREL
     Indication: Contraception
     Dosage: 1  TABLET
     Route: 048
     Dates: start: 2019
  4. ALEVE [Concomitant]
     Active Substance: NAPROXEN SODIUM
     Indication: Arthralgia
     Route: 048
     Dates: start: 2018
  5. ALEVE [Concomitant]
     Active Substance: NAPROXEN SODIUM
     Indication: Arthralgia
     Route: 048
     Dates: start: 202201
  6. Reactine [Concomitant]
     Indication: Food allergy
     Route: 048
     Dates: start: 2018
  7. SYSTANE (HYPROMELLOSE 2910 (4000 MPA.S)) [Concomitant]
     Active Substance: HYPROMELLOSE 2910 (4000 MPA.S)
     Indication: Ulcerative keratitis
     Dates: start: 2019
  8. BETADERM [Concomitant]
     Active Substance: BETAMETHASONE VALERATE
     Indication: Dermatitis atopic
     Dates: start: 20220318
  9. VITAMINS [Concomitant]
     Active Substance: VITAMINS
     Indication: Prophylaxis
     Dosage: CENTRUM MULTIVITAMIN WOMEN?1 TABLET
     Route: 048
     Dates: start: 202208
  10. EBASTINE [Concomitant]
     Active Substance: EBASTINE
     Indication: Rhinitis allergic
     Route: 048
     Dates: start: 202211
  11. GRAVOL [Concomitant]
     Active Substance: DIMENHYDRINATE
     Indication: Dizziness
     Route: 048
     Dates: start: 20221128
  12. ECHINACEA [Concomitant]
     Active Substance: ECHINACEA, UNSPECIFIED
     Indication: Infection prophylaxis
     Route: 048
     Dates: start: 20230314
  13. SERTRALINE [Concomitant]
     Active Substance: SERTRALINE HYDROCHLORIDE
     Indication: Anxiety
     Route: 048
     Dates: start: 20230530
  14. TIGER BALM RED EXTRA STRENGTH [Concomitant]
     Active Substance: CAMPHOR (SYNTHETIC)\MENTHOL
     Indication: Arthralgia
     Dates: start: 20230320
  15. NAPROXEN [Concomitant]
     Active Substance: NAPROXEN
     Indication: Arthralgia
     Route: 048
     Dates: start: 2018
  16. VALTREX [Concomitant]
     Active Substance: VALACYCLOVIR HYDROCHLORIDE
     Indication: Antiviral prophylaxis
     Route: 048
     Dates: start: 20231213
  17. FLUTICASONE [Concomitant]
     Active Substance: FLUTICASONE
     Indication: Nasopharyngitis
     Dosage: 100UG?1 INHALATION?ROA - RESPIRATORY (INHALATION)
     Dates: start: 20231112, end: 20231219
  18. FLUTICASONE [Concomitant]
     Active Substance: FLUTICASONE
     Indication: Nasopharyngitis
     Dosage: 1 INHALATION?100 MCG?ROA - RESPIRATORY (INHALATION)
     Dates: start: 20231220, end: 202401
  19. FLUTICASONE [Concomitant]
     Active Substance: FLUTICASONE
     Indication: Nasopharyngitis
     Dates: start: 202401
  20. ALBUTEROL [Concomitant]
     Active Substance: ALBUTEROL
     Indication: Nasopharyngitis
     Dosage: 100 UG?1 INHALATION?ROA - RESPIRATORY (INHALATION)
     Dates: start: 20231112, end: 20231219
  21. ALBUTEROL [Concomitant]
     Active Substance: ALBUTEROL
     Indication: Nasopharyngitis
     Dosage: 1 INHALATAION?ROA - RESPIRATORY (INHALATION)
     Dates: start: 20231220, end: 202401
  22. ALBUTEROL [Concomitant]
     Active Substance: ALBUTEROL
     Indication: Nasopharyngitis
     Dates: start: 202401
  23. MONTELUKAST [Concomitant]
     Active Substance: MONTELUKAST
     Indication: Rhinitis allergic
     Route: 048
     Dates: start: 20231214
  24. TYLENOL EXTRA STRENGTH [Concomitant]
     Active Substance: ACETAMINOPHEN
     Indication: Arthralgia
     Route: 048
     Dates: start: 202212
  25. ADVIL [Concomitant]
     Active Substance: IBUPROFEN
     Indication: Arthralgia
     Route: 048
     Dates: start: 202212

REACTIONS (3)
  - Neurogenic shock [Recovered/Resolved]
  - Headache [Not Recovered/Not Resolved]
  - Sinusitis bacterial [Not Recovered/Not Resolved]

NARRATIVE: CASE EVENT DATE: 20240309
